FAERS Safety Report 5543597-0 (Version None)
Quarter: 2007Q4

REPORT INFORMATION
  Report Type: 
  Country: None (occurrence: None)
  Receive Date: 20071206
  Receipt Date: 20071128
  Transmission Date: 20080405
  Serious: Yes (Death, Hospitalization)
  Sender: FDA-Public Use
  Company Number: 230722J07USA

PATIENT
  Age: 64 Year
  Sex: Female

DRUGS (1)
  1. REBIF [Suspect]
     Indication: MULTIPLE SCLEROSIS
     Dosage: 44 MCG, 3 IN 1 WEEKS, SUBCUTANEOUS
     Route: 058
     Dates: start: 20060731, end: 20071025

REACTIONS (4)
  - BILE DUCT OBSTRUCTION [None]
  - METASTASES TO LIVER [None]
  - OEDEMA PERIPHERAL [None]
  - PANCREATIC CARCINOMA METASTATIC [None]
